FAERS Safety Report 8865519 (Version 1)
Quarter: 2012Q4

REPORT INFORMATION
  Report Type: 
  Country: US (occurrence: US)
  Receive Date: 20121024
  Receipt Date: 20121024
  Transmission Date: 20130627
  Serious: No
  Sender: FDA-Public Use
  Company Number: US-AMGEN-USASP2012003653

PATIENT
  Age: 37 Year
  Sex: Male
  Weight: 104.31 kg

DRUGS (8)
  1. ENBREL [Suspect]
     Indication: PRODUCT USED FOR UNKNOWN INDICATION
     Dosage: 50 mg, qwk
     Route: 058
  2. VITAMIN D [Concomitant]
     Dosage: 50000 IU, UNK
  3. ARAVA [Concomitant]
     Dosage: 10 mg, UNK
  4. TRAMADOL HCL [Concomitant]
     Dosage: 50 mg, UNK
  5. MOTRIN [Concomitant]
     Dosage: 400 mg, UNK
  6. MULTIVITAMIN [Concomitant]
  7. GLUCOSAMINE [Concomitant]
     Dosage: 1000 mg, UNK
  8. FISH OIL [Concomitant]

REACTIONS (1)
  - Nasopharyngitis [Recovered/Resolved]
